APPROVED DRUG PRODUCT: PHENYTOIN SODIUM
Active Ingredient: PHENYTOIN SODIUM
Strength: 50MG/ML
Dosage Form/Route: INJECTABLE;INJECTION
Application: A040781 | Product #001
Applicant: AMERICAN REGENT INC
Approved: Dec 4, 2007 | RLD: No | RS: No | Type: DISCN